FAERS Safety Report 15273914 (Version 3)
Quarter: 2018Q4

REPORT INFORMATION
  Report Type: Other
  Country: GR (occurrence: GR)
  Receive Date: 20180814
  Receipt Date: 20181002
  Transmission Date: 20190204
  Serious: Yes (Hospitalization, Other)
  Sender: FDA-Public Use
  Company Number: GR-MERCK KGAA-2053656

PATIENT
  Age: 62 Year
  Sex: Female

DRUGS (7)
  1. SPIRONOLACTONE. [Suspect]
     Active Substance: SPIRONOLACTONE
  2. CARVEDILOL. [Suspect]
     Active Substance: CARVEDILOL
  3. INDAPAMIDE. [Suspect]
     Active Substance: INDAPAMIDE
  4. FUROSEMIDE. [Suspect]
     Active Substance: FUROSEMIDE
  5. EUTHYROX [Suspect]
     Active Substance: LEVOTHYROXINE SODIUM
     Indication: PRODUCT USED FOR UNKNOWN INDICATION
  6. ACENOCOUMAROL [Suspect]
     Active Substance: ACENOCOUMAROL
  7. ALLOPURINOL. [Suspect]
     Active Substance: ALLOPURINOL

REACTIONS (13)
  - Mucocutaneous haemorrhage [Recovered/Resolved]
  - Haematuria [Recovered/Resolved]
  - Ecchymosis [Recovered/Resolved]
  - Acute kidney injury [Recovered/Resolved]
  - Vessel puncture site haemorrhage [Recovered/Resolved]
  - Platelet dysfunction [Recovered/Resolved]
  - Gastric disorder [Unknown]
  - Gingival bleeding [Recovered/Resolved]
  - Haematemesis [Recovered/Resolved]
  - Azotaemia [Recovering/Resolving]
  - Contusion [Unknown]
  - Blood creatinine increased [Recovering/Resolving]
  - Gastritis erosive [Unknown]
